FAERS Safety Report 13837399 (Version 1)
Quarter: 2017Q3

REPORT INFORMATION
  Report Type: Spontaneous
  Country: US (occurrence: US)
  Receive Date: 20170804
  Receipt Date: 20170804
  Transmission Date: 20171127
  Serious: No
  Sender: FDA-Public Use
  Company Number: US-ROCHE-1047219

PATIENT
  Age: 45 Year
  Sex: Female
  Weight: 68.1 kg

DRUGS (3)
  1. DYAZIDE [Concomitant]
     Active Substance: HYDROCHLOROTHIAZIDE\TRIAMTERENE
     Indication: HYPERTENSION
     Route: 048
     Dates: start: 20110930
  2. NORVASC [Concomitant]
     Active Substance: AMLODIPINE BESYLATE
     Indication: HYPERTENSION
     Route: 048
     Dates: start: 20100113
  3. BONIVA [Suspect]
     Active Substance: IBANDRONATE SODIUM
     Indication: OSTEOPENIA
     Route: 048
     Dates: start: 20120303, end: 20120303

REACTIONS (4)
  - Bone pain [Unknown]
  - Diarrhoea [Unknown]
  - Chest pain [Unknown]
  - Abdominal discomfort [Unknown]

NARRATIVE: CASE EVENT DATE: 20120305
